FAERS Safety Report 17673537 (Version 2)
Quarter: 2020Q2

REPORT INFORMATION
  Report Type: Report from Study
  Country: US (occurrence: US)
  Receive Date: 20200415
  Receipt Date: 20200608
  Transmission Date: 20200714
  Serious: Yes (Other)
  Sender: FDA-Public Use
  Company Number: US-GILEAD-2020-0454940

PATIENT
  Age: 70 Year
  Sex: Male

DRUGS (3)
  1. ADCIRCA [Concomitant]
     Active Substance: TADALAFIL
  2. AMBRISENTAN [Suspect]
     Active Substance: AMBRISENTAN
     Indication: PULMONARY HYPERTENSION
     Dosage: 10 MG, QD
     Route: 048
     Dates: start: 20170210
  3. DILTIAZEM. [Concomitant]
     Active Substance: DILTIAZEM

REACTIONS (8)
  - Fall [Unknown]
  - Muscular weakness [Unknown]
  - Decreased activity [Unknown]
  - Unevaluable event [Unknown]
  - Fluid retention [Unknown]
  - Loss of consciousness [Unknown]
  - Oxygen saturation decreased [Unknown]
  - Dyspnoea [Unknown]
